FAERS Safety Report 22933680 (Version 5)
Quarter: 2023Q4

REPORT INFORMATION
  Report Type: Report from Study
  Country: US (occurrence: US)
  Receive Date: 20230912
  Receipt Date: 20231028
  Transmission Date: 20240110
  Serious: Yes (Hospitalization, Other)
  Sender: FDA-Public Use
  Company Number: US-TAKEDA-2022TUS015993

PATIENT
  Sex: Female
  Weight: 45 kg

DRUGS (5)
  1. VEDOLIZUMAB [Suspect]
     Active Substance: VEDOLIZUMAB
     Indication: Colitis ulcerative
     Dosage: 300 MILLIGRAM, Q4WEEKS
     Route: 042
  2. VEDOLIZUMAB [Suspect]
     Active Substance: VEDOLIZUMAB
     Indication: Rectal haemorrhage
  3. PREDNISONE [Concomitant]
     Active Substance: PREDNISONE
     Dosage: UNK
  4. MERCAPTOPURINE [Concomitant]
     Active Substance: MERCAPTOPURINE
     Dosage: UNK
  5. DELZICOL [Concomitant]
     Active Substance: MESALAMINE
     Dosage: UNK

REACTIONS (12)
  - Colitis ulcerative [Unknown]
  - Cerebral thrombosis [Unknown]
  - Pulmonary embolism [Unknown]
  - Headache [Unknown]
  - Stress [Unknown]
  - Product dose omission issue [Unknown]
  - Off label use [Unknown]
  - Abdominal pain upper [Unknown]
  - Hypophagia [Unknown]
  - Insomnia [Unknown]
  - Malaise [Unknown]
  - Abdominal pain [Unknown]
